FAERS Safety Report 26023874 (Version 1)
Quarter: 2025Q4

REPORT INFORMATION
  Report Type: Spontaneous
  Country: CN (occurrence: CN)
  Receive Date: 20251111
  Receipt Date: 20251111
  Transmission Date: 20260117
  Serious: Yes (Hospitalization)
  Sender: BEIGENE
  Company Number: CN-BEIGENE-BGN-2025-019053

PATIENT
  Age: 74 Year
  Weight: 73.5 kg

DRUGS (3)
  1. TISLELIZUMAB [Suspect]
     Active Substance: TISLELIZUMAB
     Indication: Hepatic cancer
     Dosage: 0.2 GRAM, Q3WK
  2. TISLELIZUMAB [Suspect]
     Active Substance: TISLELIZUMAB
     Dosage: UNK
  3. REGORAFENIB [Suspect]
     Active Substance: REGORAFENIB
     Indication: Hepatic cancer
     Dosage: 80 MILLIGRAM, QD

REACTIONS (1)
  - Hepatic function abnormal [Recovering/Resolving]
